FAERS Safety Report 10723698 (Version 1)
Quarter: 2015Q1

REPORT INFORMATION
  Report Type: Report from Study
  Country: US (occurrence: None)
  Receive Date: 20150114
  Receipt Date: 20150114
  Transmission Date: 20150721
  Serious: Yes (Other)
  Sender: FDA-Public Use
  Company Number: 201412IM008386

PATIENT
  Age: 87 Year
  Sex: Female

DRUGS (17)
  1. VITAMIN B [Concomitant]
     Active Substance: VITAMIN B
  2. LORAZEPAM. [Concomitant]
     Active Substance: LORAZEPAM
  3. PREDNISONE. [Concomitant]
     Active Substance: PREDNISONE
  4. METOPROLOL [Concomitant]
     Active Substance: METOPROLOL
  5. MUCINEX [Concomitant]
     Active Substance: GUAIFENESIN
  6. PRAVASTATIN [Concomitant]
     Active Substance: PRAVASTATIN\PRAVASTATIN SODIUM
  7. FLONASE [Concomitant]
     Active Substance: FLUTICASONE PROPIONATE
  8. MULTIVITAMIN [Concomitant]
     Active Substance: VITAMINS
  9. ZESTRIL [Concomitant]
     Active Substance: LISINOPRIL
  10. ESBRIET [Suspect]
     Active Substance: PIRFENIDONE
     Indication: IDIOPATHIC PULMONARY FIBROSIS
     Route: 048
     Dates: start: 20141217
  11. INDOMETHACIN. [Concomitant]
     Active Substance: INDOMETHACIN
  12. VITAMIN C [Concomitant]
     Active Substance: ASCORBIC ACID
  13. ASPIRIN. [Concomitant]
     Active Substance: ASPIRIN
  14. DYAZIDE [Concomitant]
     Active Substance: HYDROCHLOROTHIAZIDE\TRIAMTERENE
  15. VITAMIN D [Concomitant]
     Active Substance: CHOLECALCIFEROL
  16. PANTOPRAZOLE [Concomitant]
     Active Substance: PANTOPRAZOLE SODIUM
  17. NORCO [Concomitant]
     Active Substance: ACETAMINOPHEN\HYDROCODONE BITARTRATE

REACTIONS (7)
  - Tongue oedema [None]
  - Laryngeal oedema [None]
  - Angioedema [None]
  - Rash [None]
  - Pharyngeal oedema [None]
  - Mouth swelling [None]
  - Face oedema [None]

NARRATIVE: CASE EVENT DATE: 20141217
